FAERS Safety Report 11803377 (Version 1)
Quarter: 2015Q4

REPORT INFORMATION
  Report Type: Spontaneous
  Country: DE (occurrence: DE)
  Receive Date: 20151204
  Receipt Date: 20151204
  Transmission Date: 20160305
  Serious: Yes (Hospitalization)
  Sender: FDA-Public Use
  Company Number: DE-KADMON PHARMACEUTICALS, LLC-KAD201504-000719

PATIENT
  Sex: Female
  Weight: 80 kg

DRUGS (7)
  1. VIEKIRAX [Suspect]
     Active Substance: OMBITASVIR\PARITAPREVIR\RITONAVIR
     Indication: HEPATITIS C
     Dosage: TABLET
     Route: 048
     Dates: start: 20150203, end: 20150408
  2. TORASEMIDE (TOREM) 10 MG [Concomitant]
  3. SPIRONOLACTONE 50 MG [Concomitant]
     Active Substance: SPIRONOLACTONE
  4. EXVIERA [Suspect]
     Active Substance: DASABUVIR
     Indication: HEPATITIS C
     Dosage: TABLET
     Route: 048
     Dates: start: 20150203, end: 20150408
  5. RIBAVIRIN. [Suspect]
     Active Substance: RIBAVIRIN
     Indication: HEPATITIS C
     Dosage: TABLET
     Route: 048
     Dates: start: 20150126, end: 20150323
  6. RIFAXIMIN [Concomitant]
     Active Substance: RIFAXIMIN
  7. PANTOPRAZOLE (PANTOZOL) 40 MG [Concomitant]

REACTIONS (3)
  - Condition aggravated [Unknown]
  - Encephalopathy [Unknown]
  - Blood bilirubin increased [Unknown]
